FAERS Safety Report 5212608-4 (Version None)
Quarter: 2006Q4

REPORT INFORMATION
  Report Type: 
  Country: None (occurrence: None)
  Receive Date: 20061102
  Receipt Date: 20060228
  Transmission Date: 20070319
  Serious: Yes (Other)
  Sender: FDA-Public Use
  Company Number: 25495

PATIENT
  Age: 59 Year
  Sex: Female
  Weight: 68.0396 kg

DRUGS (3)
  1. METHOTREXATE [Suspect]
     Indication: RHEUMATOID ARTHRITIS
     Dosage: 0.6CC/ SQ/ WEEKLY
     Dates: start: 20051101
  2. PREDNISONE TAPER [Concomitant]
  3. HUMIRA [Concomitant]

REACTIONS (3)
  - INFECTION [None]
  - MUCOSAL INFLAMMATION [None]
  - STOMATITIS [None]
